FAERS Safety Report 9482282 (Version 2)
Quarter: 2013Q3

REPORT INFORMATION
  Report Type: Spontaneous
  Country: TH (occurrence: TH)
  Receive Date: 20130828
  Receipt Date: 20130828
  Transmission Date: 20140515
  Serious: Yes (Hospitalization, Other)
  Sender: FDA-Public Use
  Company Number: TH-NOVOPROD-380793

PATIENT
  Age: 45 Year
  Sex: Male
  Weight: 58 kg

DRUGS (6)
  1. LEVEMIR FLEXPEN [Suspect]
     Indication: TYPE 2 DIABETES MELLITUS
     Dosage: 6 U, BID
     Route: 058
     Dates: start: 20130418, end: 20130731
  2. LEVEMIR FLEXPEN [Suspect]
     Dosage: 10 U, QD
     Route: 058
  3. NOVORAPID PENFILL [Suspect]
     Indication: TYPE 2 DIABETES MELLITUS
     Dosage: 10U MOR, 4U DAY, 4U EVE
     Route: 058
     Dates: start: 20130424, end: 20130731
  4. NOVORAPID PENFILL [Suspect]
     Dosage: 10 U, TID
     Route: 058
  5. ZOLOFT [Concomitant]
     Dosage: UNKNOWN
     Route: 065
     Dates: start: 20130613
  6. NORTRIPTYLINE [Concomitant]
     Dosage: UNKNOWN
     Route: 065
     Dates: start: 20130613

REACTIONS (3)
  - Cardiac arrest [Unknown]
  - Blood glucose fluctuation [Recovered/Resolved]
  - Hypoglycaemia [Unknown]
